FAERS Safety Report 12658758 (Version 4)
Quarter: 2017Q1

REPORT INFORMATION
  Report Type: Spontaneous
  Country: IT (occurrence: IT)
  Receive Date: 20160817
  Receipt Date: 20170301
  Transmission Date: 20170428
  Serious: Yes (Hospitalization, Other)
  Sender: FDA-Public Use
  Company Number: IT-SUN PHARMACEUTICAL INDUSTRIES LTD-2016RR-122143

PATIENT
  Age: 16 Year
  Sex: Female

DRUGS (1)
  1. SERTRALINE [Suspect]
     Active Substance: SERTRALINE HYDROCHLORIDE
     Indication: SUICIDE ATTEMPT
     Dosage: 100 MG, 20 PILLS
     Route: 048

REACTIONS (10)
  - Suicidal ideation [Recovered/Resolved]
  - Intentional overdose [Recovered/Resolved]
  - Poverty of speech [Recovered/Resolved]
  - Depressed mood [Recovered/Resolved]
  - Anxiety [Recovered/Resolved]
  - Delusion of reference [Recovered/Resolved]
  - Tension [Recovered/Resolved]
  - Serotonin syndrome [Recovered/Resolved]
  - Toxicity to various agents [Recovered/Resolved]
  - Patient uncooperative [Recovered/Resolved]
